FAERS Safety Report 15864035 (Version 1)
Quarter: 2019Q1

REPORT INFORMATION
  Report Type: Spontaneous
  Country: US (occurrence: US)
  Receive Date: 20190124
  Receipt Date: 20190124
  Transmission Date: 20190417
  Serious: No
  Sender: FDA-Public Use
  Company Number: None

PATIENT
  Age: 68 Year
  Sex: Female
  Weight: 65.25 kg

DRUGS (1)
  1. OMEPRAZOLE. [Suspect]
     Active Substance: OMEPRAZOLE
     Route: 048

REACTIONS (4)
  - Nasal discomfort [None]
  - Nasal odour [None]
  - Eye swelling [None]
  - Sinus disorder [None]

NARRATIVE: CASE EVENT DATE: 20190116
